FAERS Safety Report 5719313-6 (Version None)
Quarter: 2008Q2

REPORT INFORMATION
  Report Type: 
  Country: None (occurrence: None)
  Receive Date: 20080428
  Receipt Date: 20080423
  Transmission Date: 20081010
  Serious: Yes (Other)
  Sender: FDA-Public Use
  Company Number: PHEH2008US04007

PATIENT
  Sex: Female

DRUGS (2)
  1. ATENOLOL [Suspect]
  2. DIOVAN [Suspect]

REACTIONS (1)
  - HEART RATE DECREASED [None]
